FAERS Safety Report 13234639 (Version 2)
Quarter: 2017Q1

REPORT INFORMATION
  Report Type: Spontaneous
  Country: US (occurrence: US)
  Receive Date: 20170215
  Receipt Date: 20170222
  Transmission Date: 20170428
  Serious: No
  Sender: FDA-Public Use
  Company Number: US-PFIZER INC-2017065899

PATIENT
  Age: 72 Year
  Sex: Male
  Weight: 79.38 kg

DRUGS (2)
  1. SILDENAFIL CITRATE. [Suspect]
     Active Substance: SILDENAFIL CITRATE
     Indication: SEXUAL DYSFUNCTION
     Dosage: HALF OF A 100MG TABLET BY MOUTH AS DIRECTED 1 HOUR BEFORE SEXUAL ACTIVITY
     Route: 048
  2. LIPITOR [Concomitant]
     Active Substance: ATORVASTATIN CALCIUM
     Indication: BLOOD CHOLESTEROL ABNORMAL
     Dosage: 50MG BY MOUTH ONCE A DAY
     Route: 048

REACTIONS (9)
  - Dyspepsia [Recovered/Resolved]
  - Feeling hot [Unknown]
  - Cough [Recovering/Resolving]
  - Nasopharyngitis [Recovering/Resolving]
  - Flushing [Unknown]
  - Feeling abnormal [Recovering/Resolving]
  - Headache [Unknown]
  - Chills [Recovering/Resolving]
  - Burning sensation [Unknown]

NARRATIVE: CASE EVENT DATE: 20170205
